FAERS Safety Report 21537297 (Version 3)
Quarter: 2025Q3

REPORT INFORMATION
  Report Type: Report from Study
  Country: US (occurrence: US)
  Receive Date: 20221101
  Receipt Date: 20250710
  Transmission Date: 20251021
  Serious: Yes (Hospitalization, Other)
  Sender: JAZZ
  Company Number: US-GW PHARMA-2022-US-033977

PATIENT
  Sex: Female

DRUGS (1)
  1. EPIDIOLEX [Suspect]
     Active Substance: CANNABIDIOL
     Indication: Lennox-Gastaut syndrome
     Route: 048
     Dates: start: 202110

REACTIONS (3)
  - Sepsis [Unknown]
  - Constipation [Unknown]
  - Seizure [Unknown]
